FAERS Safety Report 8143832-9 (Version None)
Quarter: 2012Q1

REPORT INFORMATION
  Report Type: 
  Country: None (occurrence: None)
  Receive Date: 20120217
  Receipt Date: 20120208
  Transmission Date: 20120608
  Serious: Yes (Hospitalization, Other)
  Sender: FDA-Public Use
  Company Number: US-SANOFI-AVENTIS-2012SA008297

PATIENT
  Age: 81 Year
  Sex: Female

DRUGS (1)
  1. LANTUS [Suspect]
     Dosage: LANTUS PRODUCT START DATE: 2.5-3 YEARS DOSE:7 UNIT(S)
     Route: 058

REACTIONS (2)
  - SQUAMOUS CELL CARCINOMA [None]
  - HIP FRACTURE [None]
